FAERS Safety Report 7930977-9 (Version None)
Quarter: 2011Q4

REPORT INFORMATION
  Report Type: 
  Country: None (occurrence: None)
  Receive Date: 20111121
  Receipt Date: 20111108
  Transmission Date: 20120403
  Serious: Yes (Hospitalization)
  Sender: FDA-Public Use
  Company Number: IT-CELGENEUS-083-20785-11102044

PATIENT
  Sex: Female

DRUGS (7)
  1. ASPIRIN [Concomitant]
     Dosage: 1 UNIT
     Route: 065
  2. ALLOPURINOL [Concomitant]
     Dosage: 100 MILLIGRAM
     Route: 065
  3. THALIDOMIDE [Suspect]
     Indication: MULTIPLE MYELOMA
     Dosage: 1 UNIT
     Route: 048
     Dates: start: 20110428, end: 20110516
  4. ALKERAN [Concomitant]
     Indication: MULTIPLE MYELOMA
     Route: 065
     Dates: start: 20110428, end: 20110502
  5. NATECAL D3 [Concomitant]
     Dosage: 1 UNIT
     Route: 065
  6. GAVISCON [Concomitant]
     Route: 065
  7. PREDNISONE [Concomitant]
     Indication: MULTIPLE MYELOMA
     Dosage: 25 MILLIGRAM
     Route: 065
     Dates: start: 20110428, end: 20110502

REACTIONS (1)
  - PULMONARY HYPERTENSION [None]
